FAERS Safety Report 17299605 (Version 1)
Quarter: 2020Q1

REPORT INFORMATION
  Report Type: Spontaneous
  Country: US (occurrence: US)
  Receive Date: 20200122
  Receipt Date: 20200122
  Transmission Date: 20200409
  Serious: No
  Sender: FDA-Public Use
  Company Number: US-ALLERGAN-1907225US

PATIENT
  Sex: Female

DRUGS (4)
  1. ALPHAGAN P [Concomitant]
     Active Substance: BRIMONIDINE TARTRATE
     Indication: OPTIC NERVE DISORDER
     Dosage: UNK
     Route: 047
     Dates: start: 201809
  2. HYALURONIC ACID SODIUM [Concomitant]
     Indication: HYALURONIC ACID DECREASED
  3. RESTASIS [Suspect]
     Active Substance: CYCLOSPORINE
     Dosage: 2 GTT, BID
     Route: 047
     Dates: start: 201902, end: 20190225
  4. RESTASIS [Suspect]
     Active Substance: CYCLOSPORINE
     Indication: DRY EYE
     Dosage: 2 GTT, BID
     Route: 047

REACTIONS (3)
  - Accidental exposure to product [Unknown]
  - Product storage error [Unknown]
  - Product container issue [Unknown]
